FAERS Safety Report 24435708 (Version 1)
Quarter: 2024Q4

REPORT INFORMATION
  Report Type: Spontaneous
  Country: PT (occurrence: PT)
  Receive Date: 20241015
  Receipt Date: 20241015
  Transmission Date: 20250115
  Serious: Yes (Other)
  Sender: BAUSCH AND LOMB
  Company Number: PT-LEO Pharma-374149

PATIENT
  Age: 69 Year
  Sex: Female

DRUGS (1)
  1. BRODALUMAB [Suspect]
     Active Substance: BRODALUMAB
     Indication: Product used for unknown indication
     Dosage: UNDER TREATMENT WITH KYNTHEUM FOR 2 YEARS
     Route: 065
     Dates: start: 2022

REACTIONS (1)
  - Dementia Alzheimer^s type [Unknown]
